FAERS Safety Report 18596101 (Version 16)
Quarter: 2025Q3

REPORT INFORMATION
  Report Type: Report from Study
  Country: EU (occurrence: EU)
  Receive Date: 20201209
  Receipt Date: 20250814
  Transmission Date: 20251021
  Serious: Yes (Hospitalization, Other)
  Sender: MYLAN
  Company Number: EU-ROCHE-2176591

PATIENT
  Age: 49 Year
  Sex: Female
  Weight: 78 kg

DRUGS (128)
  1. ATORVASTATIN [Suspect]
     Active Substance: ATORVASTATIN
     Indication: Blood cholesterol increased
  2. ATORVASTATIN [Suspect]
     Active Substance: ATORVASTATIN
     Route: 065
  3. ATORVASTATIN [Suspect]
     Active Substance: ATORVASTATIN
     Route: 065
  4. ATORVASTATIN [Suspect]
     Active Substance: ATORVASTATIN
  5. METFORMIN [Suspect]
     Active Substance: METFORMIN HYDROCHLORIDE
     Indication: Blood cholesterol increased
     Dosage: 1000 MILLIGRAM, BID
     Dates: end: 20190422
  6. METFORMIN [Suspect]
     Active Substance: METFORMIN HYDROCHLORIDE
     Dosage: 1000 MILLIGRAM, BID
     Route: 065
     Dates: end: 20190422
  7. METFORMIN [Suspect]
     Active Substance: METFORMIN HYDROCHLORIDE
     Dosage: 1000 MILLIGRAM, BID
     Route: 065
     Dates: end: 20190422
  8. METFORMIN [Suspect]
     Active Substance: METFORMIN HYDROCHLORIDE
     Dosage: 1000 MILLIGRAM, BID
     Dates: end: 20190422
  9. METFORMIN [Suspect]
     Active Substance: METFORMIN HYDROCHLORIDE
     Dosage: 500 MILLIGRAM, BID
     Route: 065
     Dates: start: 20190423
  10. METFORMIN [Suspect]
     Active Substance: METFORMIN HYDROCHLORIDE
     Dosage: 500 MILLIGRAM, BID
     Route: 065
     Dates: start: 20190423
  11. METFORMIN [Suspect]
     Active Substance: METFORMIN HYDROCHLORIDE
     Dosage: 500 MILLIGRAM, BID
     Dates: start: 20190423
  12. METFORMIN [Suspect]
     Active Substance: METFORMIN HYDROCHLORIDE
     Dosage: 500 MILLIGRAM, BID
     Dates: start: 20190423
  13. METFORMIN [Suspect]
     Active Substance: METFORMIN HYDROCHLORIDE
     Dosage: 500 MILLIGRAM, BID
  14. METFORMIN [Suspect]
     Active Substance: METFORMIN HYDROCHLORIDE
     Dosage: 500 MILLIGRAM, BID
     Route: 065
  15. METFORMIN [Suspect]
     Active Substance: METFORMIN HYDROCHLORIDE
     Dosage: 500 MILLIGRAM, BID
  16. METFORMIN [Suspect]
     Active Substance: METFORMIN HYDROCHLORIDE
     Dosage: 500 MILLIGRAM, BID
     Route: 065
  17. OCREVUS [Suspect]
     Active Substance: OCRELIZUMAB
     Indication: Relapsing-remitting multiple sclerosis
     Route: 042
  18. OCREVUS [Suspect]
     Active Substance: OCRELIZUMAB
  19. OCREVUS [Suspect]
     Active Substance: OCRELIZUMAB
     Route: 042
  20. OCREVUS [Suspect]
     Active Substance: OCRELIZUMAB
  21. OCREVUS [Suspect]
     Active Substance: OCRELIZUMAB
  22. OCREVUS [Suspect]
     Active Substance: OCRELIZUMAB
     Route: 042
  23. OCREVUS [Suspect]
     Active Substance: OCRELIZUMAB
     Route: 042
  24. OCREVUS [Suspect]
     Active Substance: OCRELIZUMAB
  25. OCREVUS [Suspect]
     Active Substance: OCRELIZUMAB
  26. OCREVUS [Suspect]
     Active Substance: OCRELIZUMAB
  27. OCREVUS [Suspect]
     Active Substance: OCRELIZUMAB
     Route: 042
  28. OCREVUS [Suspect]
     Active Substance: OCRELIZUMAB
     Route: 042
  29. OCREVUS [Suspect]
     Active Substance: OCRELIZUMAB
     Route: 042
  30. OCREVUS [Suspect]
     Active Substance: OCRELIZUMAB
     Route: 042
  31. OCREVUS [Suspect]
     Active Substance: OCRELIZUMAB
  32. OCREVUS [Suspect]
     Active Substance: OCRELIZUMAB
  33. OCREVUS [Suspect]
     Active Substance: OCRELIZUMAB
  34. OCREVUS [Suspect]
     Active Substance: OCRELIZUMAB
  35. OCREVUS [Suspect]
     Active Substance: OCRELIZUMAB
     Route: 042
  36. OCREVUS [Suspect]
     Active Substance: OCRELIZUMAB
     Route: 042
  37. OCREVUS [Suspect]
     Active Substance: OCRELIZUMAB
     Route: 042
  38. OCREVUS [Suspect]
     Active Substance: OCRELIZUMAB
     Route: 042
  39. OCREVUS [Suspect]
     Active Substance: OCRELIZUMAB
  40. OCREVUS [Suspect]
     Active Substance: OCRELIZUMAB
  41. OCREVUS [Suspect]
     Active Substance: OCRELIZUMAB
     Route: 042
  42. OCREVUS [Suspect]
     Active Substance: OCRELIZUMAB
  43. OCREVUS [Suspect]
     Active Substance: OCRELIZUMAB
  44. OCREVUS [Suspect]
     Active Substance: OCRELIZUMAB
     Route: 042
  45. OCREVUS [Suspect]
     Active Substance: OCRELIZUMAB
     Route: 042
     Dates: start: 20180808, end: 20231129
  46. OCREVUS [Suspect]
     Active Substance: OCRELIZUMAB
     Dates: start: 20180808, end: 20231129
  47. OCREVUS [Suspect]
     Active Substance: OCRELIZUMAB
     Dates: start: 20180808, end: 20231129
  48. OCREVUS [Suspect]
     Active Substance: OCRELIZUMAB
     Route: 042
     Dates: start: 20180808, end: 20231129
  49. COVID-19 VACCINE NOS [Suspect]
     Active Substance: COVID-19 VACCINE
     Indication: Product used for unknown indication
  50. COVID-19 VACCINE NOS [Suspect]
     Active Substance: COVID-19 VACCINE
     Route: 065
  51. COVID-19 VACCINE NOS [Suspect]
     Active Substance: COVID-19 VACCINE
     Route: 065
  52. COVID-19 VACCINE NOS [Suspect]
     Active Substance: COVID-19 VACCINE
  53. PANTOPRAZOLE SODIUM [Concomitant]
     Active Substance: PANTOPRAZOLE SODIUM
     Indication: Gastrooesophageal reflux disease
  54. PANTOPRAZOLE SODIUM [Concomitant]
     Active Substance: PANTOPRAZOLE SODIUM
  55. PANTOPRAZOLE SODIUM [Concomitant]
     Active Substance: PANTOPRAZOLE SODIUM
     Route: 065
  56. PANTOPRAZOLE SODIUM [Concomitant]
     Active Substance: PANTOPRAZOLE SODIUM
     Route: 065
  57. PANTOPRAZOLE SODIUM [Concomitant]
     Active Substance: PANTOPRAZOLE SODIUM
     Dosage: 20 MILLIGRAM, QD (EVERY 2-3 DAYS)
     Dates: start: 2011
  58. PANTOPRAZOLE SODIUM [Concomitant]
     Active Substance: PANTOPRAZOLE SODIUM
     Dosage: 20 MILLIGRAM, QD (EVERY 2-3 DAYS)
     Dates: start: 2011
  59. PANTOPRAZOLE SODIUM [Concomitant]
     Active Substance: PANTOPRAZOLE SODIUM
     Dosage: 20 MILLIGRAM, QD (EVERY 2-3 DAYS)
     Route: 048
     Dates: start: 2011
  60. PANTOPRAZOLE SODIUM [Concomitant]
     Active Substance: PANTOPRAZOLE SODIUM
     Dosage: 20 MILLIGRAM, QD (EVERY 2-3 DAYS)
     Route: 048
     Dates: start: 2011
  61. SODIUM CHLORIDE [Concomitant]
     Active Substance: SODIUM CHLORIDE
  62. SODIUM CHLORIDE [Concomitant]
     Active Substance: SODIUM CHLORIDE
     Route: 065
  63. SODIUM CHLORIDE [Concomitant]
     Active Substance: SODIUM CHLORIDE
     Route: 065
  64. SODIUM CHLORIDE [Concomitant]
     Active Substance: SODIUM CHLORIDE
  65. ROSUVASTATIN [Concomitant]
     Active Substance: ROSUVASTATIN
     Dosage: UNK, QD
  66. ROSUVASTATIN [Concomitant]
     Active Substance: ROSUVASTATIN
     Dosage: UNK, QD
     Route: 065
  67. ROSUVASTATIN [Concomitant]
     Active Substance: ROSUVASTATIN
     Dosage: UNK, QD
     Route: 065
  68. ROSUVASTATIN [Concomitant]
     Active Substance: ROSUVASTATIN
     Dosage: UNK, QD
  69. FLUTICASONE PROPIONATE\SALMETEROL XINAFOATE [Concomitant]
     Active Substance: FLUTICASONE PROPIONATE\SALMETEROL XINAFOATE
     Indication: Asthma
     Dosage: 1 DOSAGE FORM, BID
  70. FLUTICASONE PROPIONATE\SALMETEROL XINAFOATE [Concomitant]
     Active Substance: FLUTICASONE PROPIONATE\SALMETEROL XINAFOATE
     Dosage: 1 DOSAGE FORM, BID
  71. FLUTICASONE PROPIONATE\SALMETEROL XINAFOATE [Concomitant]
     Active Substance: FLUTICASONE PROPIONATE\SALMETEROL XINAFOATE
     Dosage: 1 DOSAGE FORM, BID
     Route: 065
  72. FLUTICASONE PROPIONATE\SALMETEROL XINAFOATE [Concomitant]
     Active Substance: FLUTICASONE PROPIONATE\SALMETEROL XINAFOATE
     Dosage: 1 DOSAGE FORM, BID
     Route: 065
  73. FLUTICASONE PROPIONATE\SALMETEROL XINAFOATE [Concomitant]
     Active Substance: FLUTICASONE PROPIONATE\SALMETEROL XINAFOATE
     Dosage: 550 MICROGRAM, BID
     Dates: start: 2011
  74. FLUTICASONE PROPIONATE\SALMETEROL XINAFOATE [Concomitant]
     Active Substance: FLUTICASONE PROPIONATE\SALMETEROL XINAFOATE
     Dosage: 550 MICROGRAM, BID
     Dates: start: 2011
  75. FLUTICASONE PROPIONATE\SALMETEROL XINAFOATE [Concomitant]
     Active Substance: FLUTICASONE PROPIONATE\SALMETEROL XINAFOATE
     Dosage: 550 MICROGRAM, BID
     Route: 065
     Dates: start: 2011
  76. FLUTICASONE PROPIONATE\SALMETEROL XINAFOATE [Concomitant]
     Active Substance: FLUTICASONE PROPIONATE\SALMETEROL XINAFOATE
     Dosage: 550 MICROGRAM, BID
     Route: 065
     Dates: start: 2011
  77. SIMVASTATIN [Concomitant]
     Active Substance: SIMVASTATIN
     Dosage: 20 MILLIGRAM, QD
     Dates: start: 20190823
  78. SIMVASTATIN [Concomitant]
     Active Substance: SIMVASTATIN
     Dosage: 20 MILLIGRAM, QD
     Route: 065
     Dates: start: 20190823
  79. SIMVASTATIN [Concomitant]
     Active Substance: SIMVASTATIN
     Dosage: 20 MILLIGRAM, QD
     Route: 065
     Dates: start: 20190823
  80. SIMVASTATIN [Concomitant]
     Active Substance: SIMVASTATIN
     Dosage: 20 MILLIGRAM, QD
     Dates: start: 20190823
  81. CLEMASTINE FUMARATE [Concomitant]
     Active Substance: CLEMASTINE FUMARATE
     Indication: Premedication
  82. CLEMASTINE FUMARATE [Concomitant]
     Active Substance: CLEMASTINE FUMARATE
     Route: 042
  83. CLEMASTINE FUMARATE [Concomitant]
     Active Substance: CLEMASTINE FUMARATE
     Route: 042
  84. CLEMASTINE FUMARATE [Concomitant]
     Active Substance: CLEMASTINE FUMARATE
  85. IBUPROFEN [Concomitant]
     Active Substance: IBUPROFEN
  86. IBUPROFEN [Concomitant]
     Active Substance: IBUPROFEN
  87. IBUPROFEN [Concomitant]
     Active Substance: IBUPROFEN
     Route: 048
  88. IBUPROFEN [Concomitant]
     Active Substance: IBUPROFEN
     Route: 048
  89. IBUPROFEN [Concomitant]
     Active Substance: IBUPROFEN
  90. IBUPROFEN [Concomitant]
     Active Substance: IBUPROFEN
  91. IBUPROFEN [Concomitant]
     Active Substance: IBUPROFEN
     Route: 065
  92. IBUPROFEN [Concomitant]
     Active Substance: IBUPROFEN
     Route: 065
  93. LEVOTHYROXINE SODIUM\POTASSIUM IODIDE [Concomitant]
     Active Substance: LEVOTHYROXINE SODIUM\POTASSIUM IODIDE
     Indication: Hypothyroidism
     Dosage: 100 MICROGRAM, QD
     Route: 048
     Dates: start: 2011
  94. LEVOTHYROXINE SODIUM\POTASSIUM IODIDE [Concomitant]
     Active Substance: LEVOTHYROXINE SODIUM\POTASSIUM IODIDE
     Dosage: 100 MICROGRAM, QD
     Dates: start: 2011
  95. LEVOTHYROXINE SODIUM\POTASSIUM IODIDE [Concomitant]
     Active Substance: LEVOTHYROXINE SODIUM\POTASSIUM IODIDE
     Dosage: 100 MICROGRAM, QD
     Dates: start: 2011
  96. LEVOTHYROXINE SODIUM\POTASSIUM IODIDE [Concomitant]
     Active Substance: LEVOTHYROXINE SODIUM\POTASSIUM IODIDE
     Dosage: 100 MICROGRAM, QD
     Route: 048
     Dates: start: 2011
  97. LEVOTHYROXINE SODIUM\POTASSIUM IODIDE [Concomitant]
     Active Substance: LEVOTHYROXINE SODIUM\POTASSIUM IODIDE
     Dosage: 100 MICROGRAM, QD
     Route: 048
  98. LEVOTHYROXINE SODIUM\POTASSIUM IODIDE [Concomitant]
     Active Substance: LEVOTHYROXINE SODIUM\POTASSIUM IODIDE
     Dosage: 100 MICROGRAM, QD
  99. LEVOTHYROXINE SODIUM\POTASSIUM IODIDE [Concomitant]
     Active Substance: LEVOTHYROXINE SODIUM\POTASSIUM IODIDE
     Dosage: 100 MICROGRAM, QD
  100. LEVOTHYROXINE SODIUM\POTASSIUM IODIDE [Concomitant]
     Active Substance: LEVOTHYROXINE SODIUM\POTASSIUM IODIDE
     Dosage: 100 MICROGRAM, QD
     Route: 048
  101. ALBUTEROL [Concomitant]
     Active Substance: ALBUTEROL
     Route: 065
  102. ALBUTEROL [Concomitant]
     Active Substance: ALBUTEROL
  103. ALBUTEROL [Concomitant]
     Active Substance: ALBUTEROL
  104. ALBUTEROL [Concomitant]
     Active Substance: ALBUTEROL
     Route: 065
  105. ALBUTEROL [Concomitant]
     Active Substance: ALBUTEROL
     Route: 065
  106. ALBUTEROL [Concomitant]
     Active Substance: ALBUTEROL
  107. ALBUTEROL [Concomitant]
     Active Substance: ALBUTEROL
  108. ALBUTEROL [Concomitant]
     Active Substance: ALBUTEROL
     Route: 065
  109. Apydan [Concomitant]
     Dosage: 600 MILLIGRAM, BID
     Dates: start: 20180724
  110. Apydan [Concomitant]
     Dosage: 600 MILLIGRAM, BID
     Route: 048
     Dates: start: 20180724
  111. Apydan [Concomitant]
     Dosage: 600 MILLIGRAM, BID
     Route: 048
     Dates: start: 20180724
  112. Apydan [Concomitant]
     Dosage: 600 MILLIGRAM, BID
     Dates: start: 20180724
  113. Apydan [Concomitant]
     Dosage: 600 MILLIGRAM, BID
     Route: 048
  114. Apydan [Concomitant]
     Dosage: 600 MILLIGRAM, BID
     Route: 048
  115. Apydan [Concomitant]
     Dosage: 600 MILLIGRAM, BID
  116. Apydan [Concomitant]
     Dosage: 600 MILLIGRAM, BID
  117. Apydan [Concomitant]
     Dosage: 600 MILLIGRAM, BID
  118. Apydan [Concomitant]
     Dosage: 600 MILLIGRAM, BID
     Route: 065
  119. Apydan [Concomitant]
     Dosage: 600 MILLIGRAM, BID
  120. Apydan [Concomitant]
     Dosage: 600 MILLIGRAM, BID
     Route: 065
  121. LEVETIRACETAM [Concomitant]
     Active Substance: LEVETIRACETAM
     Indication: Epilepsy
     Dosage: 1000 MILLIGRAM, BID
     Dates: start: 2017
  122. LEVETIRACETAM [Concomitant]
     Active Substance: LEVETIRACETAM
     Dosage: 1000 MILLIGRAM, BID
     Route: 048
     Dates: start: 2017
  123. LEVETIRACETAM [Concomitant]
     Active Substance: LEVETIRACETAM
     Dosage: 1000 MILLIGRAM, BID
     Route: 048
     Dates: start: 2017
  124. LEVETIRACETAM [Concomitant]
     Active Substance: LEVETIRACETAM
     Dosage: 1000 MILLIGRAM, BID
     Dates: start: 2017
  125. DOXYCYCLINE [Concomitant]
     Active Substance: DOXYCYCLINE
  126. DOXYCYCLINE [Concomitant]
     Active Substance: DOXYCYCLINE
     Route: 065
  127. DOXYCYCLINE [Concomitant]
     Active Substance: DOXYCYCLINE
     Route: 065
  128. DOXYCYCLINE [Concomitant]
     Active Substance: DOXYCYCLINE

REACTIONS (55)
  - Type 2 diabetes mellitus [Unknown]
  - Blood glucose increased [Recovered/Resolved]
  - Basal cell carcinoma [Recovered/Resolved]
  - Multiple sclerosis relapse [Recovered/Resolved]
  - Lumbar vertebral fracture [Recovered/Resolved]
  - Lyme disease [Not Recovered/Not Resolved]
  - Myocardial infarction [Recovered/Resolved]
  - Injection site swelling [Recovered/Resolved]
  - Blood cholesterol increased [Recovered/Resolved]
  - Cardiovascular disorder [Recovered/Resolved]
  - B-lymphocyte count decreased [Recovered/Resolved]
  - Interleukin level increased [Unknown]
  - Bronchitis [Recovered/Resolved]
  - Aortic disorder [Recovered/Resolved]
  - Intervertebral disc protrusion [Recovering/Resolving]
  - Herpes zoster [Recovered/Resolved]
  - Lymph node pain [Recovered/Resolved]
  - Uhthoff^s phenomenon [Not Recovered/Not Resolved]
  - Pelvic pain [Recovered/Resolved]
  - Vaginal infection [Recovered/Resolved]
  - Hyperhidrosis [Recovered/Resolved]
  - Fall [Unknown]
  - Granuloma annulare [Not Recovered/Not Resolved]
  - Urticaria [Recovered/Resolved]
  - Haematoma [Recovered/Resolved]
  - Depressed mood [Recovered/Resolved]
  - Sensory disturbance [Not Recovered/Not Resolved]
  - Muscular weakness [Recovered/Resolved]
  - Pain in extremity [Not Recovered/Not Resolved]
  - Epistaxis [Recovered/Resolved]
  - Fatigue [Recovered/Resolved]
  - Paraesthesia [Recovering/Resolving]
  - Chills [Recovered/Resolved]
  - Headache [Unknown]
  - Nasopharyngitis [Recovering/Resolving]
  - Myalgia [Not Recovered/Not Resolved]
  - Diarrhoea [Recovered/Resolved]
  - Asthenia [Recovered/Resolved]
  - Arthralgia [Recovered/Resolved]
  - Illness [Not Recovered/Not Resolved]
  - Erythema [Recovered/Resolved]
  - COVID-19 [Recovered/Resolved]
  - Product administration error [Unknown]
  - Urinary incontinence [Not Recovered/Not Resolved]
  - Back pain [Not Recovered/Not Resolved]
  - Oropharyngeal pain [Recovered/Resolved]
  - Taste disorder [Recovered/Resolved]
  - B-lymphocyte abnormalities [Recovered/Resolved]
  - Disturbance in attention [Not Recovered/Not Resolved]
  - Hypertension [Unknown]
  - Granulocyte count increased [Recovered/Resolved]
  - Dyspnoea [Unknown]
  - Eosinophil count increased [Recovered/Resolved]
  - Cough [Recovered/Resolved]
  - Fibromyalgia [Not Recovered/Not Resolved]

NARRATIVE: CASE EVENT DATE: 20180822
